FAERS Safety Report 9809030 (Version 1)
Quarter: 2014Q1

REPORT INFORMATION
  Report Type: Spontaneous
  Country: OM (occurrence: OM)
  Receive Date: 20140110
  Receipt Date: 20140110
  Transmission Date: 20141002
  Serious: Yes (Life-Threatening)
  Sender: FDA-Public Use
  Company Number: OM-GLAXOSMITHKLINE-B0959369A

PATIENT
  Age: 4 Year
  Sex: Female

DRUGS (2)
  1. ZANTAC [Suspect]
     Indication: ABDOMINAL PAIN
     Dosage: 50MG PER DAY
     Route: 065
     Dates: start: 20140104, end: 20140104
  2. ZOFRAN [Suspect]
     Indication: VOMITING
     Route: 065
     Dates: start: 20140104, end: 20140104

REACTIONS (3)
  - Circulatory collapse [Recovered/Resolved]
  - Circumoral oedema [Recovered/Resolved]
  - Hyperhidrosis [Recovered/Resolved]
